FAERS Safety Report 8222207-8 (Version None)
Quarter: 2012Q1

REPORT INFORMATION
  Report Type: 
  Country: None (occurrence: None)
  Receive Date: 20120307
  Receipt Date: 20110516
  Transmission Date: 20120608
  Serious: Yes (Hospitalization)
  Sender: FDA-Public Use
  Company Number: PHHY2011US41680

PATIENT
  Age: 6 Year
  Sex: Male

DRUGS (4)
  1. AFINITOR [Suspect]
     Indication: ASTROCYTOMA
     Dosage: 2.5 MG, DAILY, ORAL
     Route: 048
     Dates: start: 20110419
  2. SABRIL [Concomitant]
  3. CLONAZEPAM (CLONZAEPAM) [Concomitant]
  4. DEPAKOTE [Concomitant]

REACTIONS (1)
  - CONVULSION [None]
